FAERS Safety Report 4531169-6 (Version None)
Quarter: 2004Q4

REPORT INFORMATION
  Report Type: 
  Country: None (occurrence: None)
  Receive Date: 20041216
  Receipt Date: 20041203
  Transmission Date: 20050328
  Serious: Yes (Other)
  Sender: FDA-Public Use
  Company Number: DEU-2004-0001150

PATIENT
  Sex: Male

DRUGS (2)
  1. OXYCODONE HCL [Suspect]
     Indication: POST PROCEDURAL PAIN
     Dosage: 40 MG, BID, ORAL
     Route: 048
  2. MARCUMAR [Suspect]
     Indication: COAGULOPATHY
     Dosage: UNK TABLET,  ORAL
     Route: 048

REACTIONS (2)
  - DRUG INTERACTION [None]
  - PROTHROMBIN TIME SHORTENED [None]
